FAERS Safety Report 4268709-0 (Version None)
Quarter: 2004Q1

REPORT INFORMATION
  Report Type: 
  Country: None (occurrence: None)
  Receive Date: 20040109
  Receipt Date: 20031219
  Transmission Date: 20041129
  Serious: Yes (Death, Life-Threatening, Hospitalization)
  Sender: FDA-Public Use
  Company Number: EWC031036771

PATIENT
  Age: 59 Year
  Sex: Male
  Weight: 78 kg

DRUGS (11)
  1. XIGRIS [Suspect]
     Indication: SEPSIS
     Dosage: 42.72 MG/DAY
     Dates: start: 20030902, end: 20030905
  2. DOPAMINE HCL [Concomitant]
  3. NORADRENALINE [Concomitant]
  4. ERYTHROMYCIN [Concomitant]
  5. PIPERACILLIN SODIUM W/TAZOBACTAM SODIUM [Concomitant]
  6. LEVOFLOXACIN [Concomitant]
  7. VANCOMYCIN [Concomitant]
  8. DOMPERIDONE [Concomitant]
  9. SUCRALFATE [Concomitant]
  10. DALTEPARIN (HEPARIN-FRACTION, SODIUM SALT) [Concomitant]
  11. MIDAZOLAM HCL [Concomitant]

REACTIONS (15)
  - ACTIVATED PARTIAL THROMBOPLASTIN TIME PROLONGED [None]
  - CEREBRAL HAEMATOMA [None]
  - HAEMORRHAGE INTRACRANIAL [None]
  - HAEMORRHAGIC TRANSFORMATION STROKE [None]
  - HYPOXIA [None]
  - LIVER DISORDER [None]
  - LUNG DISORDER [None]
  - NERVOUS SYSTEM DISORDER [None]
  - PNEUMONIA [None]
  - PROTHROMBIN TIME PROLONGED [None]
  - RENAL DISORDER [None]
  - RENAL FAILURE ACUTE [None]
  - RESPIRATORY DISORDER [None]
  - SEPSIS [None]
  - SHOCK [None]
